FAERS Safety Report 8808650 (Version 1)
Quarter: 2012Q4

REPORT INFORMATION
  Report Type: Spontaneous
  Country: US (occurrence: None)
  Receive Date: 20120921
  Receipt Date: 20120921
  Transmission Date: 20130627
  Serious: Yes (Other)
  Sender: FDA-Public Use
  Company Number: None

PATIENT
  Age: 58 Year
  Sex: Female
  Weight: 67.59 kg

DRUGS (1)
  1. DEPAKOTE [Suspect]
     Indication: CEREBROVASCULAR ACCIDENT PROPHYLAXIS
     Dates: start: 2007, end: 2010

REACTIONS (21)
  - Dry mouth [None]
  - Rash [None]
  - Cough [None]
  - Dyspepsia [None]
  - Skin discolouration [None]
  - Dysgeusia [None]
  - Pruritus [None]
  - Eye pruritus [None]
  - Hyperhidrosis [None]
  - Gait disturbance [None]
  - Balance disorder [None]
  - Chills [None]
  - Crying [None]
  - Constipation [None]
  - Muscle spasms [None]
  - Dizziness [None]
  - Disturbance in attention [None]
  - Speech disorder [None]
  - Alopecia [None]
  - Vision blurred [None]
  - Unevaluable event [None]
